FAERS Safety Report 8908469 (Version 1)
Quarter: 2012Q4

REPORT INFORMATION
  Report Type: 
  Country: IL (occurrence: IL)
  Receive Date: 20121114
  Receipt Date: 20121114
  Transmission Date: 20130627
  Serious: Yes (Other)
  Sender: FDA-Public Use
  Company Number: IL-COVIDIEN/TYCO HEALTHCARE/MALLINCKRODT-T201203849

PATIENT
  Age: 28 Year
  Sex: Female

DRUGS (10)
  1. MORPHINE [Suspect]
     Indication: SPINAL ANAESTHESIA
     Dosage: 0.15 mg, single
     Route: 008
  2. BUPIVACAINA [Suspect]
     Indication: SPINAL ANAESTHESIA
     Dosage: 8 mg of 0.5%, single
     Route: 008
  3. KETAMINE [Suspect]
     Indication: RESTLESSNESS
     Dosage: 25 mg, UNK
  4. KETAMINE [Suspect]
     Indication: ABDOMINAL PAIN
  5. MIDAZOLAM [Suspect]
     Indication: RESTLESSNESS
     Dosage: 1 mg, UNK
  6. MIDAZOLAM [Suspect]
     Indication: ABDOMINAL PAIN
  7. PROPOFOL [Suspect]
     Indication: RESTLESSNESS
     Dosage: 100 mg, UNK
  8. PROPOFOL [Suspect]
     Indication: ABDOMINAL PAIN
  9. CEFAZOLINE [Concomitant]
     Indication: ANTIBIOTIC PROPHYLAXIS
     Dosage: 1 g
  10. OXYTOCIN [Concomitant]
     Dosage: 10 units in 1000 ml LR

REACTIONS (4)
  - Myoclonus [Recovering/Resolving]
  - Drug interaction [Recovering/Resolving]
  - Maternal exposure during delivery [None]
  - Pre-eclampsia [None]
